FAERS Safety Report 4475979-2 (Version None)
Quarter: 2004Q4

REPORT INFORMATION
  Report Type: 
  Country: None (occurrence: None)
  Receive Date: 20041012
  Receipt Date: 20041004
  Transmission Date: 20050328
  Serious: Yes (Hospitalization)
  Sender: FDA-Public Use
  Company Number: HQ6182119JAN2001

PATIENT
  Age: 69 Year
  Sex: Male
  Weight: 71.73 kg

DRUGS (12)
  1. CORDARONE [Suspect]
     Indication: CARDIOMYOPATHY
     Dosage: 200 MG 2X PER 1 DAY, ORAL
     Route: 048
     Dates: start: 19900101, end: 20040101
  2. AMIODARONE HCL [Suspect]
     Indication: HEART RATE IRREGULAR
     Dosage: ORAL
     Route: 048
     Dates: start: 20040101
  3. LANOXIN [Concomitant]
  4. COUMADIN [Concomitant]
  5. SYNTHROID [Concomitant]
  6. COZAAR [Concomitant]
  7. LIPITOR [Concomitant]
  8. LASIX [Concomitant]
  9. COENZYME Q10 [Concomitant]
  10. POTASSIUM (POTASSIUM) [Concomitant]
  11. FLOVENT [Concomitant]
  12. XOPENEX [Concomitant]

REACTIONS (7)
  - ANAEMIA [None]
  - CHROMATOPSIA [None]
  - EYE DISORDER [None]
  - MACULAR DEGENERATION [None]
  - PNEUMONIA PRIMARY ATYPICAL [None]
  - SKIN DISCOLOURATION [None]
  - VISUAL DISTURBANCE [None]
